FAERS Safety Report 11059047 (Version 1)
Quarter: 2015Q2

REPORT INFORMATION
  Report Type: Spontaneous
  Country: US (occurrence: US)
  Receive Date: 20150423
  Receipt Date: 20150423
  Transmission Date: 20150821
  Serious: No
  Sender: FDA-Public Use
  Company Number: US-BAUSCH-BL-2015-003406

PATIENT
  Age: 75 Year
  Sex: Female
  Weight: 66.74 kg

DRUGS (2)
  1. LISINOPRIL. [Concomitant]
     Active Substance: LISINOPRIL
     Indication: PRODUCT USED FOR UNKNOWN INDICATION
  2. PROLENSA [Suspect]
     Active Substance: BROMFENAC SODIUM
     Indication: POSTOPERATIVE CARE
     Dosage: 1 DROP IN RIGHT EYE, ONCE DAILY
     Route: 047
     Dates: start: 20150209, end: 20150216

REACTIONS (5)
  - Mouth ulceration [Recovered/Resolved]
  - Ocular discomfort [Recovering/Resolving]
  - Photosensitivity reaction [Recovering/Resolving]
  - Urticaria [Recovered/Resolved]
  - Vision blurred [Recovered/Resolved]
